FAERS Safety Report 9701140 (Version 1)
Quarter: 2013Q4

REPORT INFORMATION
  Report Type: Spontaneous
  Country: US (occurrence: None)
  Receive Date: 20131119
  Receipt Date: 20131119
  Transmission Date: 20140711
  Serious: Yes (Hospitalization)
  Sender: FDA-Public Use
  Company Number: AUR-APL-2013-09624

PATIENT
  Age: 42 Year
  Sex: Male

DRUGS (3)
  1. LOSARTAN (LOSARTAN) [Suspect]
     Indication: HYPERTENSION
  2. HYDROCHLOROTHIAZIDE (HYDROCHLOROTHIAZIDE) [Suspect]
     Indication: HYPERTENSION
  3. CALCIUM CARBONATE [Suspect]
     Indication: GASTROOESOPHAGEAL REFLUX DISEASE
     Dosage: FOR 4-5 DAYS A WEEK AN AVERAGE

REACTIONS (7)
  - Milk-alkali syndrome [None]
  - Hypercalcaemia [None]
  - Abdominal pain [None]
  - Nausea [None]
  - Vomiting [None]
  - Blood creatinine increased [None]
  - Blood urea increased [None]
